FAERS Safety Report 10241401 (Version 1)
Quarter: 2014Q1

REPORT INFORMATION
  Report Type: Spontaneous
  Country: US (occurrence: None)
  Receive Date: 20140306
  Receipt Date: 20140306
  Transmission Date: 20141002
  Serious: Yes (Other)
  Sender: FDA-Public Use
  Company Number: 163-21880-13110560

PATIENT
  Age: 48 Year
  Sex: Male
  Weight: 127.1 kg

DRUGS (5)
  1. REVLIMID (LENALIDOMIDE) (25 MILLIGRAM, CAPSULES) [Suspect]
     Indication: PLASMA CELL MYELOMA
     Route: 048
     Dates: start: 20120306
  2. ZOMETA (ZOLEDRONIC ACID) [Concomitant]
  3. ZOCOR (SIMVASTATIN) [Concomitant]
  4. BENICAR (OLMESARTAN MEDOXOMIL) [Concomitant]
  5. ACYCLOVIR [Concomitant]

REACTIONS (1)
  - Neutropenia [None]
